FAERS Safety Report 7586911-7 (Version None)
Quarter: 2011Q2

REPORT INFORMATION
  Report Type: 
  Country: None (occurrence: None)
  Receive Date: 20110603
  Receipt Date: 20110221
  Transmission Date: 20111010
  Serious: Yes (Hospitalization)
  Sender: FDA-Public Use
  Company Number: 2011SP008630

PATIENT
  Sex: Female

DRUGS (4)
  1. METHADONE HCL [Concomitant]
  2. WELLBUTRIN [Concomitant]
  3. SAPHRIS [Suspect]
     Indication: PRODUCT USED FOR UNKNOWN INDICATION
     Dosage: 10 MG;BID;SL
     Route: 060
  4. CELEXA [Concomitant]

REACTIONS (1)
  - BLOOD PRESSURE INCREASED [None]
